FAERS Safety Report 8546406-0 (Version None)
Quarter: 2012Q3

REPORT INFORMATION
  Report Type: 
  Country: None (occurrence: None)
  Receive Date: 20120727
  Receipt Date: 20120105
  Transmission Date: 20120928
  Serious: No
  Sender: FDA-Public Use
  Company Number: US-ASTRAZENECA-2012SE00960

PATIENT
  Age: 21 Year
  Sex: Male
  Weight: 102.1 kg

DRUGS (5)
  1. SEROQUEL XR [Suspect]
     Indication: SLEEP DISORDER
     Route: 048
  2. SEROQUEL XR [Suspect]
     Indication: INSOMNIA
     Route: 048
  3. SEROQUEL XR [Suspect]
     Route: 048
  4. SEROQUEL XR [Suspect]
     Route: 048
  5. SUBOXONE [Concomitant]

REACTIONS (3)
  - IMPULSIVE BEHAVIOUR [None]
  - FORMICATION [None]
  - OFF LABEL USE [None]
